FAERS Safety Report 24175423 (Version 4)
Quarter: 2025Q1

REPORT INFORMATION
  Report Type: Report from Study
  Country: US (occurrence: US)
  Receive Date: 20240805
  Receipt Date: 20250118
  Transmission Date: 20250408
  Serious: Yes (Other)
  Sender: NOVARTIS
  Company Number: US-002147023-NVSC2024US156383

PATIENT
  Sex: Male

DRUGS (1)
  1. KESIMPTA [Suspect]
     Active Substance: OFATUMUMAB
     Indication: Multiple sclerosis
     Route: 065

REACTIONS (7)
  - Loss of consciousness [Unknown]
  - Syncope [Unknown]
  - Drug intolerance [Unknown]
  - Irritability [Unknown]
  - Brain fog [Unknown]
  - Feeling abnormal [Unknown]
  - Injection site pain [Unknown]
